FAERS Safety Report 24877956 (Version 2)
Quarter: 2025Q4

REPORT INFORMATION
  Report Type: Spontaneous
  Country: US (occurrence: US)
  Receive Date: 20250123
  Receipt Date: 20251029
  Transmission Date: 20260117
  Serious: Yes (Hospitalization, Other)
  Sender: BRISTOL-MYERS SQUIBB COMPANY
  Company Number: US-BRISTOL-MYERS SQUIBB COMPANY-2025-009505

PATIENT
  Age: 77 Year
  Sex: Male
  Weight: 87.91 kg

DRUGS (32)
  1. REVLIMID [Suspect]
     Active Substance: LENALIDOMIDE
     Indication: Plasma cell myeloma
     Dosage: FREQUENCY: QD FOR 21 DAYS THEN 7 DAYS OFF
     Route: 048
     Dates: start: 202412
  2. XGEVA [Concomitant]
     Active Substance: DENOSUMAB
     Indication: Plasma cell myeloma
     Dates: start: 20241204
  3. DARZALEX [Concomitant]
     Active Substance: DARATUMUMAB
     Indication: Plasma cell myeloma
     Dates: start: 20241204
  4. DARZALEX [Concomitant]
     Active Substance: DARATUMUMAB
     Dates: start: 20250115
  5. VELCADE [Concomitant]
     Active Substance: BORTEZOMIB
     Indication: Plasma cell myeloma
     Dates: start: 20241204
  6. VELCADE [Concomitant]
     Active Substance: BORTEZOMIB
     Dates: start: 20250115
  7. ZOMETA [Concomitant]
     Active Substance: ZOLEDRONIC ACID
     Indication: Product used for unknown indication
  8. AMOXICILLIN [Concomitant]
     Active Substance: AMOXICILLIN
     Indication: Product used for unknown indication
     Dosage: EVERY 8 HRS
     Route: 048
  9. DORZOLAMIDE HYDROCHLORIDE\TIMOLOL MALEATE [Concomitant]
     Active Substance: DORZOLAMIDE HYDROCHLORIDE\TIMOLOL MALEATE
     Indication: Product used for unknown indication
     Dosage: 2-0.5 % 1 DROP INTO AFFECTED EYE OPHTHALMIC TWICE A DAY
     Route: 047
  10. DORZOLAMIDE HYDROCHLORIDE\TIMOLOL MALEATE [Concomitant]
     Active Substance: DORZOLAMIDE HYDROCHLORIDE\TIMOLOL MALEATE
     Indication: Product used for unknown indication
     Dosage: 2-0.5 % 1 DROP INTO AFFECTED EYE OPHTHALMIC TWICE A DAY
     Route: 047
  11. LATANOPROST [Concomitant]
     Active Substance: LATANOPROST
     Indication: Product used for unknown indication
     Dosage: 0.005 % 1 DROP INTO AFFECTED EYE IN THE EVENING OPHTHALMIC ONCE A DAY
     Route: 047
  12. IMIQUIMOD [Concomitant]
     Active Substance: IMIQUIMOD
     Indication: Product used for unknown indication
     Dosage: 5 % 1 APPLICATION AT BEDTIME, LEAVE ON FOR 8 HOURS THEN WASH OFF EXTERNALLY THREE TIMES A WEEK
  13. PLAVIX [Concomitant]
     Active Substance: CLOPIDOGREL BISULFATE
     Indication: Thrombosis prophylaxis
     Dosage: 75 MG 1 TABLET ORALLY ONCE A DAY ,30 DAY(S) ,30
     Route: 048
  14. FINASTERIDE [Concomitant]
     Active Substance: FINASTERIDE
     Indication: Product used for unknown indication
     Dosage: 5 MG 1 TABLET ORALLY ONCE A DAY ,30 DAY(S) ,30
     Route: 048
  15. HYDROCORTISONE [Concomitant]
     Active Substance: HYDROCORTISONE
     Indication: Product used for unknown indication
     Dosage: 1 APPLICATION RECTAL TWICE A DAY ,30 DAY(S) ,60
     Route: 054
  16. MESALAMINE EXTENDED RELEASE [Concomitant]
     Indication: Product used for unknown indication
     Dosage: 4 CAPSULES IN THE MORNING ORALLY ONCE A DAY ,30 DAY(S)
     Route: 048
  17. OMEPRAZOLE [Concomitant]
     Active Substance: OMEPRAZOLE
     Indication: Product used for unknown indication
     Dosage: 1 TABLET ORALLY ONCE A DAY ,30 DAY(S) ,30
     Route: 048
  18. SIMVASTATIN [Concomitant]
     Active Substance: SIMVASTATIN
     Indication: Product used for unknown indication
     Dosage: 1 TABLET IN THE EVENING ORALLY ONCE A DAY ,30 DAY(S) ,30
     Route: 048
  19. TERAZOSIN HYDROCHLORIDE [Concomitant]
     Active Substance: TERAZOSIN HYDROCHLORIDE
     Indication: Product used for unknown indication
     Dosage: 1 CAPSULE AT BEDTIME ORALLY ONCE A DAY ,30 DAY(S) ,30
     Route: 048
  20. CLINDAMYCIN PHOSPHATE [Concomitant]
     Active Substance: CLINDAMYCIN PHOSPHATE
     Indication: Folliculitis
     Dosage: 1 APPLICATION TOPICALLY TO THE SCALP 2 TIMES A DAY ,60 ML,REFILLS: 11 (FOR: FOLLICULITIS)
  21. ATIVAN [Concomitant]
     Active Substance: LORAZEPAM
     Indication: Sciatica
     Dosage: 1 TABLET AT BEDTIME AS NEEDED ORALLY ONCE A DAY ,1 DAYS , 1 TABLET, REFILLS: O (FOR: ACUTE LEFT-SIDED LOW?BACK PAIN WITH LEFT-SIDED SCIATICA)
     Route: 048
  22. PREDNISONE [Concomitant]
     Active Substance: PREDNISONE
     Indication: Sciatica
     Dosage: AS DIRECTED ORALLY 5 TABS X 3 DAYS, 4 TABS X 3 DAYS, 3 TABS X 3 DAYS, 2 TABS X 3 DAYS, 1 TAB X 3 DAYS?,15 DAYS ,47, REFILLS: O (FOR: ACUTE LEFT-SIDED LOW BACK PAIN WITH LEFT-SIDED SCIATICA)
     Route: 048
  23. ACETAMINOPHEN\HYDROCODONE [Concomitant]
     Active Substance: ACETAMINOPHEN\HYDROCODONE
     Indication: Metastases to bone
     Dosage: 7.5-325 MG 1 TO 2 TABLETS ORALLY EVERY 6 HOURS AS NEEDED ,15 DAYS,90,REFILLS: O (FOR: METASTASIS TO BONE)
     Route: 048
  24. TRAMADOL HCL [Concomitant]
     Active Substance: TRAMADOL HYDROCHLORIDE
     Indication: Metastases to bone
     Dosage: 1-2 ORALLY EVERY 8 HOURS ,5 DAYS,30,REFILLS: O (FOR: METASTASIS TO BONE)
     Route: 048
  25. KETOROLAC TROMETHAMINE [Concomitant]
     Active Substance: KETOROLAC TROMETHAMINE
     Indication: Plasma cell myeloma
     Dosage: 1 TABLET ORALLY EVERY 6 HRS,5 DAYS,20 TABLET,REFILLS: O (FOR: MULTIPLE MYELOMA NOT?HAVING ACBIEVED REMISSION)
     Route: 048
  26. IPRATROPIUM BROMIDE [Concomitant]
     Active Substance: IPRATROPIUM BROMIDE
     Indication: Cerumen impaction
     Dosage: 4 SPRAYS 2 SPRAYS IN EACH NOSTRIL NASALLY FOUR TIMES A DAY ,30 DAYS ,1 APPLICATOR
  27. POTASSIUM CHLORIDE EXTENDED RELEASE [Concomitant]
     Active Substance: POTASSIUM CHLORIDE
     Indication: Product used for unknown indication
     Dosage: 1 TABLET WITH FOOD ORALLY ONCE A DAY ,30 DAYS ,30,REFILLS: 3
     Route: 048
  28. CITALOPRAM [Concomitant]
     Active Substance: CITALOPRAM
     Indication: Product used for unknown indication
  29. ZOLPIDEM [Concomitant]
     Active Substance: ZOLPIDEM TARTRATE
     Indication: Product used for unknown indication
  30. ACYCLOVIR [Concomitant]
     Active Substance: ACYCLOVIR
     Indication: Herpes zoster
     Route: 048
  31. DEXAMETHASONE [Concomitant]
     Active Substance: DEXAMETHASONE
     Indication: Product used for unknown indication
     Dosage: 1 TABLET ORALLY THE DAY AFTER CHEMO X 4 WEEKS
     Route: 048
  32. KETOROLAC [Concomitant]
     Active Substance: KETOROLAC TROMETHAMINE
     Indication: Pain
     Dosage: Q 6HRS
     Route: 048

REACTIONS (8)
  - Pneumonia [Recovering/Resolving]
  - Influenza [Unknown]
  - Pharyngitis streptococcal [Unknown]
  - Urinary tract infection [Unknown]
  - Back pain [Unknown]
  - Arthralgia [Unknown]
  - Neck pain [Unknown]
  - Pruritus [Unknown]

NARRATIVE: CASE EVENT DATE: 20250103
